FAERS Safety Report 18675853 (Version 2)
Quarter: 2021Q1

REPORT INFORMATION
  Report Type: Spontaneous
  Country: IN (occurrence: IN)
  Receive Date: 20201229
  Receipt Date: 20210112
  Transmission Date: 20210419
  Serious: Yes (Other)
  Sender: FDA-Public Use
  Company Number: IN-SUN PHARMACEUTICAL INDUSTRIES LTD-2020R1-273041

PATIENT
  Age: 55 Year
  Sex: Male

DRUGS (4)
  1. CISPLATIN. [Suspect]
     Active Substance: CISPLATIN
     Indication: SMALL INTESTINE CARCINOMA
  2. GEMCITABINE. [Suspect]
     Active Substance: GEMCITABINE
     Indication: SMALL INTESTINE CARCINOMA
  3. GEMCITABINE. [Suspect]
     Active Substance: GEMCITABINE
     Indication: CHEMOTHERAPY
     Dosage: 1400 MILLIGRAM EVERY 21 DAYS 2 CYCLES
     Route: 042
     Dates: start: 20160209, end: 20160410
  4. CISPLATIN. [Suspect]
     Active Substance: CISPLATIN
     Indication: CHEMOTHERAPY
     Dosage: 50 MILLIGRAM EVERY 21 DAYS 2 CYCLES
     Route: 042
     Dates: start: 20160209, end: 20160410

REACTIONS (1)
  - Disease progression [Unknown]

NARRATIVE: CASE EVENT DATE: 2017
